FAERS Safety Report 17026994 (Version 1)
Quarter: 2019Q4

REPORT INFORMATION
  Report Type: Spontaneous
  Country: US (occurrence: US)
  Receive Date: 20191010
  Receipt Date: 20191010
  Transmission Date: 20200122
  Serious: No
  Sender: FDA-Public Use
  Company Number: None

PATIENT
  Age: 10 Year
  Sex: Female

DRUGS (6)
  1. ACTIGALL [Concomitant]
     Active Substance: URSODIOL
  2. METHOTREXATE. [Concomitant]
     Active Substance: METHOTREXATE
  3. GABAPENTIN. [Concomitant]
     Active Substance: GABAPENTIN
  4. OMEPRAZOLE. [Concomitant]
     Active Substance: OMEPRAZOLE
  5. ENBREL [Suspect]
     Active Substance: ETANERCEPT
     Indication: JUVENILE IDIOPATHIC ARTHRITIS
     Route: 058
     Dates: start: 20180315
  6. FOLIC ACID. [Concomitant]
     Active Substance: FOLIC ACID

REACTIONS (1)
  - Gastric disorder [None]

NARRATIVE: CASE EVENT DATE: 201909
